FAERS Safety Report 4965374-1 (Version None)
Quarter: 2006Q2

REPORT INFORMATION
  Report Type: 
  Country: None (occurrence: None)
  Receive Date: 20060406
  Receipt Date: 20060309
  Transmission Date: 20061013
  Serious: Yes (Death, Hospitalization)
  Sender: FDA-Public Use
  Company Number: US-MERCK-0603USA01715

PATIENT
  Age: 74 Year
  Sex: Male
  Weight: 81 kg

DRUGS (2)
  1. VIOXX [Suspect]
     Indication: BACK PAIN
     Route: 048
     Dates: start: 20021201, end: 20040206
  2. TYLENOL (CAPLET) [Concomitant]
     Route: 065

REACTIONS (16)
  - ANEURYSM [None]
  - ATRIAL FIBRILLATION [None]
  - BACTERAEMIA [None]
  - BODY TEMPERATURE INCREASED [None]
  - CEREBROVASCULAR ACCIDENT [None]
  - CERVICAL SPINAL STENOSIS [None]
  - CHEST PAIN [None]
  - DECUBITUS ULCER [None]
  - DEEP VEIN THROMBOSIS [None]
  - MALNUTRITION [None]
  - OSTEOARTHRITIS [None]
  - OSTEOMYELITIS [None]
  - PHLEBITIS [None]
  - PNEUMONIA [None]
  - PULMONARY EMBOLISM [None]
  - THYROID NEOPLASM [None]
